FAERS Safety Report 18243825 (Version 3)
Quarter: 2020Q4

REPORT INFORMATION
  Report Type: Spontaneous
  Country: US (occurrence: US)
  Receive Date: 20200908
  Receipt Date: 20201009
  Transmission Date: 20210113
  Serious: Yes (Hospitalization)
  Sender: FDA-Public Use
  Company Number: US-TEVA-2020-US-1824713

PATIENT
  Age: 56 Year
  Sex: Male
  Weight: 102 kg

DRUGS (34)
  1. ATORVASTATIN [Concomitant]
     Active Substance: ATORVASTATIN
     Indication: PRODUCT USED FOR UNKNOWN INDICATION
     Dosage: 80 MILLIGRAM DAILY; WITH DINNER
     Route: 048
  2. TAMSULOSIN [Concomitant]
     Active Substance: TAMSULOSIN
     Indication: PRODUCT USED FOR UNKNOWN INDICATION
     Dosage: .8 MILLIGRAM DAILY;
     Route: 048
  3. LAMOTRIGINE. [Concomitant]
     Active Substance: LAMOTRIGINE
     Dosage: 50 MILLIGRAM DAILY;
     Route: 048
  4. HALOPERIDOL. [Suspect]
     Active Substance: HALOPERIDOL
     Indication: ANXIETY
  5. VENLAFAXINE XR [Concomitant]
     Active Substance: VENLAFAXINE HYDROCHLORIDE
     Dosage: 75 MILLIGRAM DAILY; FORMULATION: EXTENDED-RELEASE
     Route: 048
  6. HALOPERIDOL. [Suspect]
     Active Substance: HALOPERIDOL
     Indication: AGITATION
  7. LISINOPRIL. [Concomitant]
     Active Substance: LISINOPRIL
     Indication: HYPERTENSION
     Dosage: 10 MILLIGRAM DAILY;
     Route: 048
  8. ONDANSETRON ODT [Concomitant]
     Active Substance: ONDANSETRON
     Indication: NAUSEA
     Dosage: 16 MILLIGRAM DAILY; ADMINISTERED EVERY 6 HOURS PRN
     Route: 048
  9. MIRTAZAPINE. [Concomitant]
     Active Substance: MIRTAZAPINE
     Indication: PRODUCT USED FOR UNKNOWN INDICATION
     Dosage: 30 MILLIGRAM DAILY; ADMINISTERED NIGHTLY
     Route: 048
  10. CLOZAPINE. [Suspect]
     Active Substance: CLOZAPINE
     Indication: SCHIZOAFFECTIVE DISORDER
     Dosage: 25 MILLIGRAM DAILY; DOSE: 25MG NIGHTLY, INCREASED BY 25MG NIGHTLY, FROM 25MG NIGHTLY UP TO 350MG NIG
     Route: 048
  11. CLOZAPINE. [Suspect]
     Active Substance: CLOZAPINE
     Dosage: 350 MILLIGRAM DAILY; ADMINISTERED NIGHTLY
     Route: 048
  12. LORAZEPAM. [Concomitant]
     Active Substance: LORAZEPAM
     Indication: AGITATION
     Dosage: 2 MILLIGRAM DAILY;
     Route: 048
  13. VENLAFAXINE XR [Concomitant]
     Active Substance: VENLAFAXINE HYDROCHLORIDE
     Dosage: 150 MILLIGRAM DAILY; FORMULATION: EXTENDED-RELEASE
     Route: 048
  14. HALOPERIDOL. [Suspect]
     Active Substance: HALOPERIDOL
     Indication: SCHIZOAFFECTIVE DISORDER
     Dosage: 2 MILLIGRAM DAILY; ADMINISTERED ON THE FIRST TWO DAYS OF CLOZAPINE THERAPY
     Route: 048
  15. ASPIRIN. [Concomitant]
     Active Substance: ASPIRIN
     Indication: PRODUCT USED FOR UNKNOWN INDICATION
     Route: 048
  16. LAMOTRIGINE. [Concomitant]
     Active Substance: LAMOTRIGINE
     Indication: PRODUCT USED FOR UNKNOWN INDICATION
     Dosage: 100 MILLIGRAM DAILY;
     Route: 048
  17. MIRTAZAPINE. [Concomitant]
     Active Substance: MIRTAZAPINE
     Dosage: 15 MILLIGRAM DAILY; ADMINISTERED NIGHTLY
     Route: 048
  18. MIRTAZAPINE. [Concomitant]
     Active Substance: MIRTAZAPINE
     Dosage: 7.5 MILLIGRAM DAILY; ADMINISTERED NIGHTLY
     Route: 048
  19. VENLAFAXINE XR [Concomitant]
     Active Substance: VENLAFAXINE HYDROCHLORIDE
     Indication: PRODUCT USED FOR UNKNOWN INDICATION
     Dosage: 225 MILLIGRAM DAILY; FORMULATION: EXTENDED-RELEASE
     Route: 048
  20. ERGOCALCIFEROL. [Concomitant]
     Active Substance: ERGOCALCIFEROL
     Indication: PRODUCT USED FOR UNKNOWN INDICATION
     Route: 048
  21. GABAPENTIN. [Concomitant]
     Active Substance: GABAPENTIN
     Indication: PRODUCT USED FOR UNKNOWN INDICATION
     Dosage: ADMINISTERED THREE TIMES DAILY
     Route: 048
  22. VENLAFAXINE XR [Concomitant]
     Active Substance: VENLAFAXINE HYDROCHLORIDE
     Dosage: 37.5 MILLIGRAM DAILY; FORMULATION: EXTENDED-RELEASE
     Route: 048
  23. CLOZAPINE. [Suspect]
     Active Substance: CLOZAPINE
     Dosage: 350 MILLIGRAM DAILY; DOSE TITRATED BACK TO 350 MG, FOLLOWING WHICH HE DEVELOPED SOMNOLENCE, LEADING
     Route: 048
  24. METFORMIN [Concomitant]
     Active Substance: METFORMIN HYDROCHLORIDE
     Indication: TYPE 2 DIABETES MELLITUS
     Route: 065
  25. FENOFIBRATE. [Concomitant]
     Active Substance: FENOFIBRATE
     Indication: PRODUCT USED FOR UNKNOWN INDICATION
     Dosage: 160 MILLIGRAM DAILY;
     Route: 048
  26. LORAZEPAM. [Concomitant]
     Active Substance: LORAZEPAM
     Dosage: 1 MILLIGRAM DAILY;
     Route: 048
  27. LORAZEPAM. [Concomitant]
     Active Substance: LORAZEPAM
     Dosage: 8 MILLIGRAM DAILY; AS REQUIRED FOR ANXIETY AND AGITATION
     Route: 048
  28. MELATONIN [Concomitant]
     Active Substance: MELATONIN
     Indication: INSOMNIA
     Dosage: 6 MILLIGRAM DAILY; ADMINISTERED NIGHTLY
     Route: 048
  29. CLOZAPINE. [Suspect]
     Active Substance: CLOZAPINE
     Dosage: 200 MILLIGRAM DAILY; ADMINISTERED NIGHTLY; DOSE REDUCED FROM 350 MG TO 200 MG FOLLOWING TRANSFER TO
     Route: 048
  30. FAMOTIDINE. [Concomitant]
     Active Substance: FAMOTIDINE
     Indication: PRODUCT USED FOR UNKNOWN INDICATION
     Dosage: 40 MILLIGRAM DAILY;
     Route: 048
  31. FLUTICASONE PROPIONATE. [Concomitant]
     Active Substance: FLUTICASONE PROPIONATE
     Indication: PRODUCT USED FOR UNKNOWN INDICATION
     Dosage: 50 MICROGRAM DAILY; ADMINISTERED INTRANASALLY IN EACH NARE DAILY
     Route: 050
  32. ONDANSETRON ODT [Concomitant]
     Active Substance: ONDANSETRON
     Indication: TARDIVE DYSKINESIA
     Dosage: 16 MILLIGRAM DAILY;
     Route: 048
  33. ONDANSETRON ODT [Concomitant]
     Active Substance: ONDANSETRON
     Indication: VOMITING
  34. LORAZEPAM. [Concomitant]
     Active Substance: LORAZEPAM
     Indication: ANXIETY
     Dosage: 4 MILLIGRAM DAILY;
     Route: 048

REACTIONS (9)
  - Constipation [Unknown]
  - Enuresis [Unknown]
  - Salivary hypersecretion [Unknown]
  - Pulmonary embolism [Recovering/Resolving]
  - Sedation [Unknown]
  - Dyspnoea [Recovered/Resolved]
  - Tachycardia [Unknown]
  - Embolism venous [Recovering/Resolving]
  - Somnolence [Unknown]
